FAERS Safety Report 19950768 (Version 1)
Quarter: 2021Q4

REPORT INFORMATION
  Report Type: Spontaneous
  Country: KR (occurrence: KR)
  Receive Date: 20211014
  Receipt Date: 20211014
  Transmission Date: 20220303
  Serious: Yes (Hospitalization, Other)
  Sender: FDA-Public Use
  Company Number: KR-IPCA LABORATORIES LIMITED-IPC-2021-KR-001755

PATIENT

DRUGS (4)
  1. WARFARIN [Suspect]
     Active Substance: WARFARIN
     Indication: Coronary artery embolism
     Dosage: 4.5 MILLIGRAM
     Route: 048
     Dates: start: 201812, end: 201902
  2. WARFARIN [Suspect]
     Active Substance: WARFARIN
     Dosage: UNK
     Route: 065
     Dates: start: 20170208
  3. HEPARIN [Concomitant]
     Active Substance: HEPARIN SODIUM
     Indication: Coronary artery embolism
     Dosage: UNK
     Route: 042
  4. APIXABAN [Concomitant]
     Active Substance: APIXABAN
     Indication: Coronary artery embolism
     Dosage: 5 MILLIGRAM, BID
     Route: 065
     Dates: start: 201902

REACTIONS (6)
  - Nausea [Recovering/Resolving]
  - Paraesthesia [Recovering/Resolving]
  - Urticaria [Recovering/Resolving]
  - Hypoaesthesia [Recovering/Resolving]
  - Rash [Recovering/Resolving]
  - Treatment noncompliance [Unknown]

NARRATIVE: CASE EVENT DATE: 20170301
